FAERS Safety Report 8590050-6 (Version None)
Quarter: 2012Q3

REPORT INFORMATION
  Report Type: 
  Country: None (occurrence: None)
  Receive Date: 20120813
  Receipt Date: 20120803
  Transmission Date: 20120928
  Serious: Yes (Other)
  Sender: FDA-Public Use
  Company Number: US-BAYER-2012-062375

PATIENT
  Age: 31 Year
  Sex: Female
  Weight: 91.61 kg

DRUGS (2)
  1. MIRENA [Suspect]
     Indication: CONTRACEPTION
     Dosage: 20 MCG/24HR, CONT
     Dates: start: 20120611, end: 20120611
  2. CYTOTEC [Concomitant]
     Dosage: 200 MG, QID

REACTIONS (1)
  - UTERINE PERFORATION [None]
